FAERS Safety Report 20484360 (Version 1)
Quarter: 2022Q1

REPORT INFORMATION
  Report Type: Spontaneous
  Country: DE (occurrence: None)
  Receive Date: 20220217
  Receipt Date: 20220217
  Transmission Date: 20220423
  Serious: Yes (Life-Threatening, Other)
  Sender: FDA-Public Use
  Company Number: 2022A071241

PATIENT
  Sex: Male

DRUGS (1)
  1. TICAGRELOR [Suspect]
     Active Substance: TICAGRELOR
     Indication: Myocardial infarction
     Dosage: 90.0MG UNKNOWN
     Route: 048
     Dates: start: 202008

REACTIONS (2)
  - Myocardial infarction [Unknown]
  - Ligament rupture [Unknown]

NARRATIVE: CASE EVENT DATE: 20210801
